FAERS Safety Report 11800488 (Version 1)
Quarter: 2015Q4

REPORT INFORMATION
  Report Type: Report from Study
  Country: BR (occurrence: BR)
  Receive Date: 20151203
  Receipt Date: 20151203
  Transmission Date: 20160305
  Serious: Yes (Death)
  Sender: FDA-Public Use
  Company Number: BR-BRISTOL-MYERS SQUIBB COMPANY-BMS-2015-081700

PATIENT
  Sex: Male
  Weight: 97 kg

DRUGS (1)
  1. CETUXIMAB [Suspect]
     Active Substance: CETUXIMAB
     Indication: COLORECTAL CANCER
     Dosage: UNK, Q2WK
     Route: 042
     Dates: start: 20150505

REACTIONS (2)
  - Thrombosis [Fatal]
  - Adverse event [Unknown]
